FAERS Safety Report 10914387 (Version 1)
Quarter: 2015Q1

REPORT INFORMATION
  Report Type: Spontaneous
  Country: US (occurrence: None)
  Receive Date: 20150311
  Receipt Date: 20150311
  Transmission Date: 20150721
  Serious: Yes (Other)
  Sender: FDA-Public Use
  Company Number: FK201501132

PATIENT
  Age: 69 Year
  Sex: Female

DRUGS (2)
  1. TOPOTECAN [Suspect]
     Active Substance: TOPOTECAN\TOPOTECAN HYDROCHLORIDE
     Indication: LUNG ADENOCARCINOMA
     Dosage: 0.4 MG, 2 IN 1 WK,
     Route: 018
  2. CYTARABINE (CYTARABINE) [Concomitant]
     Active Substance: CYTARABINE

REACTIONS (1)
  - Colloid brain cyst [None]

NARRATIVE: CASE EVENT DATE: 201401
